FAERS Safety Report 7772622-1 (Version None)
Quarter: 2011Q3

REPORT INFORMATION
  Report Type: 
  Country: None (occurrence: None)
  Receive Date: 20110922
  Receipt Date: 20110121
  Transmission Date: 20111222
  Serious: No
  Sender: FDA-Public Use
  Company Number: US-ASTRAZENECA-2011SE03972

PATIENT
  Age: 38 Year
  Sex: Male
  Weight: 96.6 kg

DRUGS (12)
  1. SIMCOR [Concomitant]
     Indication: HYPERCHOLESTEROLAEMIA
     Dosage: 500/20 MG DAILY
  2. SEROQUEL [Suspect]
     Route: 048
  3. METHADONE HCL [Concomitant]
     Indication: PAIN
  4. SEROQUEL [Suspect]
     Route: 048
  5. SEROQUEL [Suspect]
     Route: 048
  6. SEROQUEL [Suspect]
     Route: 048
  7. ALPRAZOLAM [Concomitant]
     Indication: ANXIETY
  8. SEROQUEL [Suspect]
     Indication: ANXIETY
     Route: 048
     Dates: start: 20090101
  9. SEROQUEL [Suspect]
     Indication: SLEEP DISORDER
     Route: 048
     Dates: start: 20090101
  10. ALBUTEROL INHALER [Concomitant]
     Indication: ASTHMA
     Dosage: PRN
  11. BENECAR [Concomitant]
     Indication: HYPERTENSION
  12. VERAPAMIL [Concomitant]
     Indication: HYPERTENSION

REACTIONS (2)
  - WRONG TECHNIQUE IN DRUG USAGE PROCESS [None]
  - SLEEP DISORDER [None]
